FAERS Safety Report 4740314-9 (Version None)
Quarter: 2005Q3

REPORT INFORMATION
  Report Type: 
  Country: None (occurrence: None)
  Receive Date: 20050729
  Receipt Date: 20050513
  Transmission Date: 20060218
  Serious: No
  Sender: FDA-Public Use
  Company Number: RB-1627-2005

PATIENT
  Age: 50 Year
  Sex: Female
  Weight: 63.5036 kg

DRUGS (4)
  1. SUBOXONE [Suspect]
     Indication: DRUG DEPENDENCE
     Dosage: 16 MG DAILY SL
     Dates: start: 20040901, end: 20041004
  2. SUBOXONE [Suspect]
     Indication: DRUG DEPENDENCE
     Dosage: 24 MG DAILY SL
     Route: 060
     Dates: start: 20041004, end: 20041103
  3. SUBOXONE [Suspect]
     Indication: DRUG DEPENDENCE
     Dosage: 16 MG DAILY SL
     Dates: start: 20041206, end: 20041229
  4. SUBOXONE [Suspect]
     Indication: DRUG DEPENDENCE
     Dosage: 24 MG DAILY SL
     Dates: start: 20041229, end: 20041229

REACTIONS (1)
  - LIVER FUNCTION TEST ABNORMAL [None]
